FAERS Safety Report 9523487 (Version 2)
Quarter: 2013Q3

REPORT INFORMATION
  Report Type: Spontaneous
  Country: US (occurrence: US)
  Receive Date: 20130913
  Receipt Date: 20130920
  Transmission Date: 20140515
  Serious: Yes (Other)
  Sender: FDA-Public Use
  Company Number: US-GLAXOSMITHKLINE-A1039977A

PATIENT
  Age: 77 Year
  Sex: Female

DRUGS (10)
  1. ADVAIR [Suspect]
     Indication: PRODUCT USED FOR UNKNOWN INDICATION
     Route: 065
  2. AZELASTINE HYDROCHLORIDE [Concomitant]
  3. FEXOFENADINE [Concomitant]
  4. HYDROCHLOROTHIAZIDE [Concomitant]
  5. LOSARTAN [Concomitant]
  6. METHOCARBAMOL [Concomitant]
  7. OXYCODONE + ACETAMINOPHEN [Concomitant]
  8. PREDNISONE [Concomitant]
  9. QUETIAPINE FUMARATE [Concomitant]
  10. UNSPECIFIED MEDICATION [Concomitant]

REACTIONS (5)
  - Sinus operation [Unknown]
  - Initial insomnia [Unknown]
  - Sputum discoloured [Unknown]
  - Cough [Unknown]
  - Dyspnoea [Unknown]
